FAERS Safety Report 6240726-0 (Version None)
Quarter: 2009Q2

REPORT INFORMATION
  Report Type: 
  Country: None (occurrence: None)
  Receive Date: 20090623
  Receipt Date: 20090219
  Transmission Date: 20091009
  Serious: No
  Sender: FDA-Public Use
  Company Number: US-ASTRAZENECA-2009UW05299

PATIENT
  Age: 32913 Day
  Sex: Male
  Weight: 72.6 kg

DRUGS (4)
  1. PULMICORT RESPULES [Suspect]
     Indication: BRONCHITIS
     Dosage: 0.5 MG EVERY 12 HOURS
     Route: 055
     Dates: start: 20090225
  2. IPRATROPIUM BROMIDE [Concomitant]
  3. PREDNISONE TAB [Concomitant]
  4. AZITHROMYCIN [Concomitant]

REACTIONS (2)
  - FATIGUE [None]
  - FLUSHING [None]
